FAERS Safety Report 23302892 (Version 1)
Quarter: 2023Q4

REPORT INFORMATION
  Report Type: Spontaneous
  Country: US (occurrence: US)
  Receive Date: 20231215
  Receipt Date: 20231215
  Transmission Date: 20240110
  Serious: No
  Sender: FDA-Public Use
  Company Number: US-009507513-2311USA005617

PATIENT
  Age: 64 Year
  Sex: Male

DRUGS (5)
  1. NOXAFIL [Suspect]
     Active Substance: POSACONAZOLE
     Indication: Medical device site joint infection
     Dosage: 400 MILLIGRAM, DAILY
     Route: 048
  2. CANCIDAS [Suspect]
     Active Substance: CASPOFUNGIN ACETATE
     Indication: Medical device site joint infection
     Dosage: FOR 12 WEEKS
  3. DOXYCYCLINE [Concomitant]
     Active Substance: DOXYCYCLINE
     Indication: Prophylaxis
     Dosage: 300 MILLIGRAM
  4. VORICONAZOLE [Concomitant]
     Active Substance: VORICONAZOLE
     Dosage: EMPIRIC
     Route: 042
  5. AMPHOTERICIN B [Concomitant]
     Active Substance: AMPHOTERICIN B
     Indication: Medical device site joint infection
     Dosage: 5 MILLIGRAM/KILOGRAM

REACTIONS (1)
  - Off label use [Unknown]
